FAERS Safety Report 23945687 (Version 2)
Quarter: 2024Q4

REPORT INFORMATION
  Report Type: Spontaneous
  Country: FR (occurrence: FR)
  Receive Date: 20240606
  Receipt Date: 20241103
  Transmission Date: 20250115
  Serious: Yes (Other)
  Sender: UCB
  Company Number: FR-UCBSA-2024028519

PATIENT
  Sex: Female

DRUGS (2)
  1. CIMZIA [Suspect]
     Active Substance: CERTOLIZUMAB PEGOL
     Indication: Crohn^s disease
     Dosage: 200 MILLIGRAM, EV 2 WEEKS(QOW)
     Dates: start: 2021
  2. CIMZIA [Suspect]
     Active Substance: CERTOLIZUMAB PEGOL
     Indication: Off label use
     Dosage: 200 MILLIGRAM, EV 2 WEEKS(QOW)
     Dates: start: 2022

REACTIONS (8)
  - Erysipelas [Unknown]
  - Crohn^s disease [Not Recovered/Not Resolved]
  - Phlebitis [Unknown]
  - Fatigue [Not Recovered/Not Resolved]
  - Somnolence [Not Recovered/Not Resolved]
  - Drug intolerance [Unknown]
  - Off label use [Unknown]
  - Drug ineffective for unapproved indication [Unknown]

NARRATIVE: CASE EVENT DATE: 20220101
